FAERS Safety Report 8494333 (Version 8)
Quarter: 2012Q4

REPORT INFORMATION
  Report Type: 
  Country: KR (occurrence: KR)
  Receive Date: 20120404
  Receipt Date: 20121115
  Transmission Date: 20130627
  Serious: Yes (Hospitalization)
  Sender: FDA-Public Use
  Company Number: KR-ABBOTT-12P-090-0919179-00

PATIENT
  Age: 37 Year
  Sex: Male
  Weight: 57 kg

DRUGS (6)
  1. HUMIRA 40 MG/0.8 ML PEN [Suspect]
     Indication: CROHN^S DISEASE
     Route: 058
     Dates: start: 20110812, end: 2012
  2. HUMIRA 40 MG/0.8 ML PEN [Suspect]
     Route: 058
     Dates: start: 201210, end: 201210
  3. HUMIRA 40 MG/0.8 ML PEN [Suspect]
     Route: 058
     Dates: start: 201211
  4. PENTASA [Concomitant]
     Indication: CROHN^S DISEASE
     Route: 048
     Dates: start: 2012
  5. FOLIC ACID [Concomitant]
     Indication: CROHN^S DISEASE
     Route: 048
     Dates: start: 2012
  6. FOLIC ACID [Concomitant]
     Indication: CROHN^S DISEASE
     Route: 048

REACTIONS (19)
  - Gastrointestinal inflammation [Recovered/Resolved]
  - Intestinal haemorrhage [Recovered/Resolved]
  - Diarrhoea [Not Recovered/Not Resolved]
  - Syncope [Unknown]
  - Herpes zoster [Recovered/Resolved]
  - Gastric disorder [Unknown]
  - Weight decreased [Not Recovered/Not Resolved]
  - Acne [Recovered/Resolved]
  - Productive cough [Recovered/Resolved]
  - Cough [Recovered/Resolved]
  - Headache [Recovered/Resolved]
  - Conjunctivitis [Recovered/Resolved]
  - Secretion discharge [Unknown]
  - Activities of daily living impaired [Unknown]
  - Formication [Unknown]
  - Nasopharyngitis [Unknown]
  - Lethargy [Not Recovered/Not Resolved]
  - Haematochezia [Recovered/Resolved]
  - Flatulence [Recovered/Resolved]
